FAERS Safety Report 5072075-0 (Version None)
Quarter: 2006Q3

REPORT INFORMATION
  Report Type: 
  Country: None (occurrence: None)
  Receive Date: 20060807
  Receipt Date: 20060726
  Transmission Date: 20061208
  Serious: Yes (Other)
  Sender: FDA-Public Use
  Company Number: CA-JNJFOC-20060705470

PATIENT
  Age: 28 Year
  Sex: Male

DRUGS (3)
  1. REMICADE [Suspect]
  2. REMICADE [Suspect]
     Indication: ANKYLOSING SPONDYLITIS
  3. MORPHINE [Suspect]
     Indication: PAIN

REACTIONS (2)
  - ABASIA [None]
  - PAIN [None]
